FAERS Safety Report 6747406-3 (Version None)
Quarter: 2010Q2

REPORT INFORMATION
  Report Type: 
  Country: None (occurrence: None)
  Receive Date: 20100528
  Receipt Date: 20100521
  Transmission Date: 20101027
  Serious: Yes (Other)
  Sender: FDA-Public Use
  Company Number: TW-BAXTER-2010BH012714

PATIENT
  Age: 52 Year
  Sex: Female
  Weight: 32 kg

DRUGS (1)
  1. HOLOXAN BAXTER [Suspect]
     Indication: NEOPLASM MALIGNANT
     Route: 065
     Dates: start: 20100210

REACTIONS (1)
  - HYPOKALAEMIA [None]
